FAERS Safety Report 8241520-1 (Version None)
Quarter: 2012Q1

REPORT INFORMATION
  Report Type: 
  Country: None (occurrence: None)
  Receive Date: 20120328
  Receipt Date: 20120322
  Transmission Date: 20120608
  Serious: Yes (Other)
  Sender: FDA-Public Use
  Company Number: US-PFIZER INC-2012075255

PATIENT
  Sex: Female
  Weight: 88.435 kg

DRUGS (5)
  1. PERCOCET [Concomitant]
     Dosage: UNK
  2. LYRICA [Suspect]
     Indication: FIBROMYALGIA
     Dosage: 150 MG, 2X/DAY
     Route: 048
     Dates: end: 20120219
  3. LYRICA [Suspect]
     Dosage: 75 MG, 3X/DAY
     Route: 048
     Dates: start: 20120219
  4. LYRICA [Suspect]
     Indication: NEUROPATHY PERIPHERAL
     Dosage: 150 MG, 2X/DAY
     Route: 048
  5. LYRICA [Suspect]
     Indication: NERVE INJURY
     Dosage: 75 MG, UNK
     Route: 048

REACTIONS (12)
  - NEURALGIA [None]
  - WEIGHT INCREASED [None]
  - AMNESIA [None]
  - HEART SOUNDS ABNORMAL [None]
  - GAIT DISTURBANCE [None]
  - VISION BLURRED [None]
  - SYSTEMIC LUPUS ERYTHEMATOSUS [None]
  - DIARRHOEA [None]
  - MOOD ALTERED [None]
  - SPINAL FRACTURE [None]
  - NAUSEA [None]
  - ANGINA PECTORIS [None]
